FAERS Safety Report 5790169-9 (Version None)
Quarter: 2008Q2

REPORT INFORMATION
  Report Type: 
  Country: None (occurrence: None)
  Receive Date: 20080626
  Receipt Date: 20080320
  Transmission Date: 20081010
  Serious: No
  Sender: FDA-Public Use
  Company Number: A0702973A

PATIENT
  Age: 55 Year
  Sex: Female

DRUGS (1)
  1. ALLI [Suspect]
     Dates: start: 20080109, end: 20090111

REACTIONS (5)
  - NASOPHARYNGITIS [None]
  - PHARMACEUTICAL PRODUCT COMPLAINT [None]
  - PHARYNGOLARYNGEAL PAIN [None]
  - PYREXIA [None]
  - RHINORRHOEA [None]
